FAERS Safety Report 8998637 (Version 3)
Quarter: 2013Q2

REPORT INFORMATION
  Report Type: Report from Study
  Country: US (occurrence: US)
  Receive Date: 20130103
  Receipt Date: 20130606
  Transmission Date: 20140414
  Serious: Yes (Other)
  Sender: FDA-Public Use
  Company Number: PHEH2013US000444

PATIENT
  Age: 57 Year
  Sex: Female

DRUGS (5)
  1. GILENYA [Suspect]
     Indication: RELAPSING-REMITTING MULTIPLE SCLEROSIS
     Dosage: 0.5 MG, QD
     Route: 048
     Dates: start: 201209, end: 201302
  2. GILENYA [Suspect]
     Dosage: 0.5 MG, QD
     Route: 048
     Dates: start: 201303, end: 201304
  3. FOSAMAX [Concomitant]
     Indication: OSTEOPOROSIS
     Dosage: 1 G, QW
  4. TIZANIDINE [Concomitant]
     Indication: MUSCLE SPASTICITY
     Dosage: 4 MG, QID
  5. TIZANIDINE [Concomitant]
     Dosage: 2 MG, QD

REACTIONS (5)
  - Insomnia [Not Recovered/Not Resolved]
  - Photophobia [Unknown]
  - Visual impairment [Recovered/Resolved]
  - Headache [Recovered/Resolved]
  - Depression [Unknown]
